FAERS Safety Report 20124514 (Version 1)
Quarter: 2021Q4

REPORT INFORMATION
  Report Type: Spontaneous
  Country: US (occurrence: US)
  Receive Date: 20211129
  Receipt Date: 20211129
  Transmission Date: 20220303
  Serious: No
  Sender: FDA-Public Use
  Company Number: US-TEVA-2021-US-1979322

PATIENT
  Sex: Male

DRUGS (1)
  1. PROAIR DIGIHALER [Suspect]
     Active Substance: ALBUTEROL SULFATE
     Route: 065

REACTIONS (6)
  - Cough [Unknown]
  - Device delivery system issue [Unknown]
  - Device issue [Unknown]
  - Device alarm issue [Unknown]
  - Drug dose omission by device [Unknown]
  - Product residue present [Unknown]
